FAERS Safety Report 4532725-1 (Version None)
Quarter: 2004Q4

REPORT INFORMATION
  Report Type: 
  Country: None (occurrence: None)
  Receive Date: 20041220
  Receipt Date: 20041220
  Transmission Date: 20050328
  Serious: Yes (Other)
  Sender: FDA-Public Use
  Company Number: None

PATIENT
  Age: 45 Year
  Sex: Female

DRUGS (1)
  1. ULTRAVIST 300 [Suspect]
     Dosage: 125 CC

REACTIONS (6)
  - DYSPNOEA [None]
  - MIGRAINE [None]
  - NAUSEA [None]
  - PHOTOPHOBIA [None]
  - THROAT TIGHTNESS [None]
  - VOMITING [None]
